FAERS Safety Report 16785888 (Version 1)
Quarter: 2019Q3

REPORT INFORMATION
  Report Type: Spontaneous
  Country: US (occurrence: US)
  Receive Date: 20190909
  Receipt Date: 20190909
  Transmission Date: 20191005
  Serious: Yes (Hospitalization)
  Sender: FDA-Public Use
  Company Number: US-NEUROCRINE BIOSCIENCES INC.-2019NBI02526

PATIENT
  Sex: Female

DRUGS (8)
  1. KLONOPIN [Concomitant]
     Active Substance: CLONAZEPAM
  2. PRIMIDONE. [Concomitant]
     Active Substance: PRIMIDONE
  3. MIRTAZAPINE. [Concomitant]
     Active Substance: MIRTAZAPINE
  4. OLANZAPINE. [Concomitant]
     Active Substance: OLANZAPINE
  5. LAMICTAL [Concomitant]
     Active Substance: LAMOTRIGINE
  6. INGREZZA [Suspect]
     Active Substance: VALBENAZINE
     Indication: TARDIVE DYSKINESIA
  7. COGENTIN [Concomitant]
     Active Substance: BENZTROPINE MESYLATE
  8. AMANTADINE. [Concomitant]
     Active Substance: AMANTADINE HYDROCHLORIDE

REACTIONS (1)
  - Dyskinesia [Recovered/Resolved]
